FAERS Safety Report 6516141-9 (Version None)
Quarter: 2009Q4

REPORT INFORMATION
  Report Type: 
  Country: None (occurrence: None)
  Receive Date: 20091223
  Receipt Date: 20091214
  Transmission Date: 20100525
  Serious: Yes (Death, Hospitalization)
  Sender: FDA-Public Use
  Company Number: US-AMGEN-US378778

PATIENT
  Sex: Male

DRUGS (3)
  1. NPLATE [Suspect]
     Indication: IDIOPATHIC THROMBOCYTOPENIC PURPURA
     Dates: start: 20091120, end: 20091128
  2. CORTICOSTEROID NOS [Concomitant]
     Dates: start: 20091113, end: 20091205
  3. CYCLOPHOSPHAMIDE [Concomitant]
     Dates: start: 19991204, end: 20091204

REACTIONS (2)
  - RESPIRATORY FAILURE [None]
  - THROMBOCYTOPENIA [None]
